FAERS Safety Report 8056651-9 (Version None)
Quarter: 2012Q1

REPORT INFORMATION
  Report Type: 
  Country: None (occurrence: None)
  Receive Date: 20120119
  Receipt Date: 20120116
  Transmission Date: 20120608
  Serious: Yes (Hospitalization)
  Sender: FDA-Public Use
  Company Number: RU-ABBOTT-11P-251-0837601-00

PATIENT
  Sex: Male
  Weight: 67 kg

DRUGS (2)
  1. HUMIRA [Suspect]
     Indication: SYNOVITIS
  2. HUMIRA [Suspect]
     Indication: ANKYLOSING SPONDYLITIS
     Route: 058
     Dates: start: 20110630, end: 20110630

REACTIONS (4)
  - FALL [None]
  - PARAESTHESIA [None]
  - HYPOAESTHESIA [None]
  - HYPOAESTHESIA ORAL [None]
